FAERS Safety Report 18268808 (Version 2)
Quarter: 2020Q4

REPORT INFORMATION
  Report Type: Spontaneous
  Country: US (occurrence: US)
  Receive Date: 20200915
  Receipt Date: 20201215
  Transmission Date: 20210113
  Serious: No
  Sender: FDA-Public Use
  Company Number: US-PFIZER INC-2020348523

PATIENT
  Age: 55 Year
  Sex: Female

DRUGS (1)
  1. IBRANCE [Suspect]
     Active Substance: PALBOCICLIB
     Indication: BREAST CANCER FEMALE
     Dosage: 75 MG, ALTERNATE DAY [1 PO EVERY OTHER DAY AS DIRECTED/TAKING LBRANCE EVERY OTHER DAY]
     Route: 048

REACTIONS (2)
  - Neoplasm progression [Unknown]
  - Off label use [Unknown]
